FAERS Safety Report 15575525 (Version 5)
Quarter: 2019Q2

REPORT INFORMATION
  Report Type: Spontaneous
  Country: CA (occurrence: CA)
  Receive Date: 20181101
  Receipt Date: 20190415
  Transmission Date: 20190711
  Serious: Yes (Other)
  Sender: FDA-Public Use
  Company Number: CA-PFIZER INC-2018446663

PATIENT
  Sex: Female

DRUGS (3)
  1. LEFLUNOMIDE. [Concomitant]
     Active Substance: LEFLUNOMIDE
     Dosage: 20 MG, 1X/DAY
     Dates: start: 201804
  2. METHOTREXATE SODIUM. [Suspect]
     Active Substance: METHOTREXATE SODIUM
     Dosage: 25 MG, WEEKLY
     Dates: start: 201404, end: 201609
  3. PLAQUENIL S [Concomitant]
     Active Substance: HYDROXYCHLOROQUINE SULFATE
     Dosage: 200 MG, TWICE DAILY
     Dates: start: 201804

REACTIONS (10)
  - Blood cholesterol abnormal [Unknown]
  - Malaise [Unknown]
  - Urinary tract infection [Unknown]
  - Muscle strain [Unknown]
  - Nasopharyngitis [Unknown]
  - Influenza [Unknown]
  - Breast cancer [Recovering/Resolving]
  - Nephrolithiasis [Unknown]
  - Hypertension [Unknown]
  - Gastrointestinal disorder [Unknown]
